FAERS Safety Report 15290057 (Version 2)
Quarter: 2018Q3

REPORT INFORMATION
  Report Type: Spontaneous
  Country: US (occurrence: US)
  Receive Date: 20180817
  Receipt Date: 20180823
  Transmission Date: 20181010
  Serious: Yes (Other)
  Sender: FDA-Public Use
  Company Number: US-TEVA-2018-US-942406

PATIENT
  Sex: Female

DRUGS (2)
  1. CEFALEXIN [Suspect]
     Active Substance: CEPHALEXIN
     Indication: NASOPHARYNGITIS
     Route: 065
  2. CEFALEXIN [Suspect]
     Active Substance: CEPHALEXIN
     Indication: PYREXIA
     Route: 065

REACTIONS (7)
  - Gaze palsy [Unknown]
  - Loss of consciousness [Unknown]
  - Head injury [Unknown]
  - Hypoaesthesia oral [Unknown]
  - Diarrhoea [Unknown]
  - Fall [Unknown]
  - Photopsia [Unknown]
